FAERS Safety Report 8058153-2 (Version None)
Quarter: 2012Q1

REPORT INFORMATION
  Report Type: 
  Country: None (occurrence: None)
  Receive Date: 20120120
  Receipt Date: 20120113
  Transmission Date: 20120608
  Serious: Yes (Other)
  Sender: FDA-Public Use
  Company Number: US-JNJFOC-20120105053

PATIENT
  Sex: Female
  Weight: 92.99 kg

DRUGS (2)
  1. DURAGESIC-100 [Suspect]
     Indication: COMPLEX REGIONAL PAIN SYNDROME
     Route: 062
     Dates: start: 19960101
  2. DURAGESIC-100 [Suspect]
     Indication: PAIN
     Route: 062
     Dates: start: 19960101

REACTIONS (11)
  - MAMMOGRAM ABNORMAL [None]
  - BLOOD GLUCOSE INCREASED [None]
  - IMMUNE SYSTEM DISORDER [None]
  - VISUAL ACUITY REDUCED [None]
  - BREAST ENLARGEMENT [None]
  - INADEQUATE ANALGESIA [None]
  - OEDEMA PERIPHERAL [None]
  - PRODUCT PACKAGING ISSUE [None]
  - PRODUCT QUALITY ISSUE [None]
  - MIGRAINE [None]
  - NEOPLASM [None]
